FAERS Safety Report 12830006 (Version 1)
Quarter: 2016Q4

REPORT INFORMATION
  Report Type: Spontaneous
  Country: US (occurrence: US)
  Receive Date: 20161007
  Receipt Date: 20161007
  Transmission Date: 20170207
  Serious: No
  Sender: FDA-Public Use
  Company Number: US-SA-2016SA139636

PATIENT
  Age: 35 Year
  Sex: Female

DRUGS (1)
  1. AUBAGIO [Suspect]
     Active Substance: TERIFLUNOMIDE
     Indication: MULTIPLE SCLEROSIS
     Route: 065

REACTIONS (8)
  - Vomiting [Unknown]
  - Nausea [Unknown]
  - Mood swings [Unknown]
  - Anger [Unknown]
  - Abnormal behaviour [Unknown]
  - Anxiety [Unknown]
  - Heart rate increased [Unknown]
  - Dyspnoea [Unknown]
